FAERS Safety Report 5388421-4 (Version None)
Quarter: 2007Q3

REPORT INFORMATION
  Report Type: 
  Country: None (occurrence: None)
  Receive Date: 20070716
  Receipt Date: 20070709
  Transmission Date: 20080115
  Serious: Yes (Death)
  Sender: FDA-Public Use
  Company Number: GB-ELI_LILLY_AND_COMPANY-GB200707001878

PATIENT
  Age: 65 Year
  Sex: Female

DRUGS (1)
  1. OLANZAPINE [Suspect]
     Indication: AGITATION
     Dosage: 5 MG, EACH EVENING
     Dates: start: 20070201

REACTIONS (1)
  - BRONCHOPNEUMONIA [None]
